FAERS Safety Report 23957650 (Version 3)
Quarter: 2024Q2

REPORT INFORMATION
  Report Type: Spontaneous
  Country: JP (occurrence: JP)
  Receive Date: 20240610
  Receipt Date: 20240621
  Transmission Date: 20240716
  Serious: Yes (Hospitalization, Other)
  Sender: FDA-Public Use
  Company Number: JP-PFIZER INC-PV202400074698

PATIENT
  Age: 116 Month
  Sex: Female
  Weight: 28.7 kg

DRUGS (7)
  1. RITUXIMAB [Suspect]
     Active Substance: RITUXIMAB
     Indication: Nephrotic syndrome
     Dosage: AFTER THE 16TH RECURRENCE, AFTER THE 16TH RECURRENCE
  2. RITUXIMAB [Suspect]
     Active Substance: RITUXIMAB
     Dosage: SECOND DOSE OF RTX WAS ADMINISTERED AT THE 19TH RECURRENCE
  3. RITUXIMAB [Suspect]
     Active Substance: RITUXIMAB
     Dosage: 3 TIMES IN 4 YEARS
  4. CYCLOSPORINE [Concomitant]
     Active Substance: CYCLOSPORINE
     Indication: Nephrotic syndrome
     Dosage: 130 MG, DAILY
  5. MIZORIBINE [Concomitant]
     Active Substance: MIZORIBINE
     Indication: Nephrotic syndrome
     Dosage: USED TEMPORARILY AFTER THE 17TH RECURRENCE
  6. CYCLOPHOSPHAMIDE [Concomitant]
     Active Substance: CYCLOPHOSPHAMIDE
     Indication: Nephrotic syndrome
     Dosage: USED TEMPORARILY AFTER THE 17TH RECURRENCE
  7. MYCOPHENOLATE MOFETIL [Concomitant]
     Active Substance: MYCOPHENOLATE MOFETIL
     Indication: Nephrotic syndrome
     Dosage: UNK

REACTIONS (4)
  - IgA nephropathy [Recovered/Resolved]
  - Hypogammaglobulinaemia [Unknown]
  - Upper respiratory tract infection [Unknown]
  - Off label use [Unknown]
